FAERS Safety Report 20026348 (Version 1)
Quarter: 2021Q4

REPORT INFORMATION
  Report Type: Spontaneous
  Country: US (occurrence: US)
  Receive Date: 20211102
  Receipt Date: 20211102
  Transmission Date: 20220303
  Serious: No
  Sender: FDA-Public Use
  Company Number: US-GALDERMA-US2021016488

PATIENT

DRUGS (13)
  1. PROACTIV MD ADAPALENE ACNE TREATMENT [Suspect]
     Active Substance: ADAPALENE
     Indication: Product used for unknown indication
     Dosage: 1 DOSAGE FORM, EVERYDAY
     Route: 061
     Dates: start: 202103, end: 2021
  2. PROACTIV MD ADAPALENE ACNE TREATMENT [Suspect]
     Active Substance: ADAPALENE
     Dosage: 1 DOSAGE FORM, EVERY OTHER DAY
     Route: 061
     Dates: start: 2021, end: 2021
  3. PROACTIV MD ADAPALENE ACNE TREATMENT [Suspect]
     Active Substance: ADAPALENE
     Dosage: 1 DOSAGE FORM, EVERY OTHER THREE DAYS
     Route: 061
     Dates: start: 2021, end: 202104
  4. PROACTIV MD DAILY OIL CONTROL SPF 30 [Suspect]
     Active Substance: AVOBENZONE\OCTISALATE\OCTOCRYLENE
     Indication: Product used for unknown indication
     Dosage: 1 DOSAGE FORM, CUTANEOUS SOLUTION, EVERYDAY
     Route: 061
     Dates: start: 202103, end: 2021
  5. PROACTIV MD DAILY OIL CONTROL SPF 30 [Suspect]
     Active Substance: AVOBENZONE\OCTISALATE\OCTOCRYLENE
     Dosage: 1 DOSAGE FORM, CUTANEOUS SOLUTION, EVERY OTHER DAY
     Route: 061
     Dates: start: 2021, end: 2021
  6. PROACTIV MD DAILY OIL CONTROL SPF 30 [Suspect]
     Active Substance: AVOBENZONE\OCTISALATE\OCTOCRYLENE
     Dosage: 1 DOSAGE FORM, CUTANEOUS SOLUTION, EVERY OTHER THREE DAYS
     Route: 061
     Dates: start: 2021, end: 202104
  7. Proactiv General [Concomitant]
     Indication: Product used for unknown indication
     Dosage: 1 DOSAGE FORM, EVERYDAY
     Route: 061
     Dates: start: 202103, end: 2021
  8. Proactiv General [Concomitant]
     Dosage: 1 DOSAGE FORM, EVERY OTHER DAY
     Route: 061
     Dates: start: 2021, end: 2021
  9. Proactiv General [Concomitant]
     Dosage: 1 DOSAGE FORM, EVERY OTHER THREE DAYS
     Route: 061
     Dates: start: 2021, end: 202104
  10. COSMETICS [Concomitant]
     Active Substance: COSMETICS
     Indication: Product used for unknown indication
     Dosage: 1 DOSAGE FORM, EVERYDAY
     Route: 061
     Dates: start: 202103, end: 2021
  11. COSMETICS [Concomitant]
     Active Substance: COSMETICS
     Dosage: 1 DOSAGE FORM, EVERY OTHER DAY
     Route: 061
     Dates: start: 2021, end: 2021
  12. COSMETICS [Concomitant]
     Active Substance: COSMETICS
     Dosage: 1 DOSAGE FORM, EVERY OTHER THREE DAYS
     Route: 061
     Dates: start: 2021, end: 202104
  13. VITAMINS [Concomitant]
     Active Substance: VITAMINS
     Indication: Product used for unknown indication
     Route: 065

REACTIONS (4)
  - Erythema [Recovered/Resolved]
  - Skin exfoliation [Recovered/Resolved]
  - Inappropriate schedule of product administration [Recovered/Resolved]
  - Underdose [Recovered/Resolved]

NARRATIVE: CASE EVENT DATE: 20210301
